FAERS Safety Report 21178439 (Version 2)
Quarter: 2022Q3

REPORT INFORMATION
  Report Type: Report from Study
  Country: DE (occurrence: DE)
  Receive Date: 20220805
  Receipt Date: 20220825
  Transmission Date: 20221027
  Serious: Yes (Hospitalization, Other)
  Sender: FDA-Public Use
  Company Number: DE-MYLANLABS-2022M1080387

PATIENT
  Sex: Female

DRUGS (7)
  1. UNSPECIFIED INGREDIENT [Suspect]
     Active Substance: UNSPECIFIED INGREDIENT
     Dosage: NO DOSE GIVEN
  2. METHOTREXATE SODIUM [Suspect]
     Active Substance: METHOTREXATE SODIUM
     Indication: Rheumatoid arthritis
     Dosage: 15 MILLIGRAM
  3. METHOTREXATE SODIUM [Suspect]
     Active Substance: METHOTREXATE SODIUM
     Dosage: 20 MILLIGRAM
  4. METHOTREXATE SODIUM [Suspect]
     Active Substance: METHOTREXATE SODIUM
     Dosage: 10 MILLIGRAM
  5. RITUXIMAB [Suspect]
     Active Substance: RITUXIMAB
     Indication: Rheumatoid arthritis
     Dosage: 500 MILLIGRAM
     Dates: start: 201711
  6. MABTHERA [Suspect]
     Active Substance: RITUXIMAB
     Indication: Rheumatoid arthritis
     Dosage: 500 MILLIGRAM
     Dates: start: 201608
  7. MABTHERA [Suspect]
     Active Substance: RITUXIMAB
     Dosage: 500 MILLIGRAM
     Dates: start: 201702

REACTIONS (6)
  - Rheumatoid arthritis [Recovered/Resolved]
  - Device loosening [Not Recovered/Not Resolved]
  - Skin discolouration [Not Recovered/Not Resolved]
  - Oral herpes [Recovered/Resolved]
  - Tinea pedis [Not Recovered/Not Resolved]
  - Hyperkeratosis [Unknown]

NARRATIVE: CASE EVENT DATE: 20210501
